FAERS Safety Report 5114631-7 (Version None)
Quarter: 2006Q3

REPORT INFORMATION
  Report Type: 
  Country: None (occurrence: None)
  Receive Date: 20060926
  Receipt Date: 20060731
  Transmission Date: 20061208
  Serious: Yes (Other)
  Sender: FDA-Public Use
  Company Number: 2006SE04640

PATIENT
  Age: 77 Year
  Sex: Male
  Weight: 75 kg

DRUGS (3)
  1. ZOLADEX [Suspect]
     Indication: PROSTATE CANCER
     Route: 058
     Dates: start: 20050620
  2. SERETIDE [Concomitant]
     Indication: ASTHMA
     Route: 055
     Dates: start: 20050101
  3. BECONASE [Concomitant]
     Indication: RHINITIS
     Route: 045
     Dates: start: 19990101

REACTIONS (3)
  - ARTHRALGIA [None]
  - FASCIITIS [None]
  - LOCALISED OEDEMA [None]
